FAERS Safety Report 23715617 (Version 11)
Quarter: 2025Q3

REPORT INFORMATION
  Report Type: Report from Study
  Country: CA (occurrence: CA)
  Receive Date: 20240408
  Receipt Date: 20250725
  Transmission Date: 20251021
  Serious: Yes (Hospitalization, Other)
  Sender: CSL BEHRING
  Company Number: CA-BEH-2023165835

PATIENT
  Age: 64 Year
  Sex: Female
  Weight: 60 kg

DRUGS (29)
  1. BERINERT [Suspect]
     Active Substance: HUMAN C1-ESTERASE INHIBITOR
     Indication: Hereditary angioedema
     Dosage: 1500 INTERNATIONAL UNIT, TIW
     Route: 042
     Dates: start: 20130101
  2. BERINERT [Suspect]
     Active Substance: HUMAN C1-ESTERASE INHIBITOR
     Indication: Hereditary angioedema
     Dosage: 1500 INTERNATIONAL UNIT, TIW
     Route: 042
     Dates: start: 20130101
  3. BERINERT [Suspect]
     Active Substance: HUMAN C1-ESTERASE INHIBITOR
     Indication: Prophylaxis
     Route: 058
     Dates: start: 20240212
  4. BERINERT [Suspect]
     Active Substance: HUMAN C1-ESTERASE INHIBITOR
     Indication: Prophylaxis
     Route: 058
     Dates: start: 20240212
  5. BERINERT [Suspect]
     Active Substance: HUMAN C1-ESTERASE INHIBITOR
     Indication: Off label use
     Route: 065
     Dates: start: 20240306
  6. BERINERT [Suspect]
     Active Substance: HUMAN C1-ESTERASE INHIBITOR
     Indication: Off label use
     Route: 065
     Dates: start: 20240306
  7. BERINERT [Suspect]
     Active Substance: HUMAN C1-ESTERASE INHIBITOR
     Indication: Hereditary angioedema
     Route: 042
     Dates: start: 20180810
  8. BERINERT [Suspect]
     Active Substance: HUMAN C1-ESTERASE INHIBITOR
     Indication: Hereditary angioedema
     Route: 042
     Dates: start: 20180810
  9. BERINERT [Suspect]
     Active Substance: HUMAN C1-ESTERASE INHIBITOR
     Indication: Hereditary angioedema
     Route: 065
     Dates: start: 20240411
  10. BERINERT [Suspect]
     Active Substance: HUMAN C1-ESTERASE INHIBITOR
     Indication: Hereditary angioedema
     Route: 065
     Dates: start: 20240411
  11. BERINERT [Suspect]
     Active Substance: HUMAN C1-ESTERASE INHIBITOR
     Indication: Prophylaxis
     Route: 042
     Dates: start: 20180810
  12. BERINERT [Suspect]
     Active Substance: HUMAN C1-ESTERASE INHIBITOR
     Indication: Prophylaxis
     Route: 042
     Dates: start: 20180810
  13. BERINERT [Suspect]
     Active Substance: HUMAN C1-ESTERASE INHIBITOR
     Dosage: 1500 IU, TIW
     Route: 042
     Dates: start: 20180810
  14. BERINERT [Suspect]
     Active Substance: HUMAN C1-ESTERASE INHIBITOR
     Dosage: 1500 IU, TIW
     Route: 042
     Dates: start: 20180810
  15. BERINERT [Suspect]
     Active Substance: HUMAN C1-ESTERASE INHIBITOR
     Route: 042
     Dates: start: 202405
  16. BERINERT [Suspect]
     Active Substance: HUMAN C1-ESTERASE INHIBITOR
     Route: 042
     Dates: start: 202405
  17. BERINERT [Suspect]
     Active Substance: HUMAN C1-ESTERASE INHIBITOR
     Dosage: 1500 IU, TIW
     Route: 042
     Dates: start: 20240603
  18. BERINERT [Suspect]
     Active Substance: HUMAN C1-ESTERASE INHIBITOR
     Dosage: 1500 IU, TIW
     Route: 042
     Dates: start: 20240603
  19. BERINERT [Suspect]
     Active Substance: HUMAN C1-ESTERASE INHIBITOR
     Route: 042
     Dates: start: 20180810
  20. BERINERT [Suspect]
     Active Substance: HUMAN C1-ESTERASE INHIBITOR
     Route: 042
     Dates: start: 20180810
  21. TAKHZYRO [Suspect]
     Active Substance: LANADELUMAB-FLYO
     Indication: Product used for unknown indication
     Dosage: 300 MG, QOW
     Route: 065
  22. TAKHZYRO [Suspect]
     Active Substance: LANADELUMAB-FLYO
     Dosage: 300 MG, BIW
     Route: 058
  23. EFFEXOR [Concomitant]
     Active Substance: VENLAFAXINE HYDROCHLORIDE
     Indication: Product used for unknown indication
     Route: 065
  24. HYDROCHLOROTHIAZIDE\TELMISARTAN [Concomitant]
     Active Substance: HYDROCHLOROTHIAZIDE\TELMISARTAN
     Indication: Product used for unknown indication
     Route: 065
  25. PANTOPRAZOLE [Concomitant]
     Active Substance: PANTOPRAZOLE
  26. GRAVOL [Concomitant]
     Active Substance: DIMENHYDRINATE
  27. MORPHINE SULFATE [Concomitant]
     Active Substance: MORPHINE SULFATE
  28. SODIUM CHLORIDE [Concomitant]
     Active Substance: SODIUM CHLORIDE
  29. CANNABIDIOL\HERBALS [Concomitant]
     Active Substance: CANNABIDIOL\HERBALS
     Indication: Product used for unknown indication
     Route: 065

REACTIONS (39)
  - Gastrointestinal haemorrhage [Unknown]
  - Cholecystitis [Unknown]
  - Sepsis [Unknown]
  - Ileus [Unknown]
  - Failure to thrive [Unknown]
  - Haemoglobin abnormal [Unknown]
  - Internal haemorrhage [Unknown]
  - Colectomy [Unknown]
  - Intestinal obstruction [Unknown]
  - Weight decreased [Unknown]
  - Fungaemia [Unknown]
  - Hypertension [Not Recovered/Not Resolved]
  - Hereditary angioedema [Unknown]
  - Hereditary angioedema [Not Recovered/Not Resolved]
  - Hereditary angioedema [Unknown]
  - Erythema [Unknown]
  - Pain in extremity [Unknown]
  - Abdominal distension [Unknown]
  - Abdominal pain [Unknown]
  - Asthenia [Unknown]
  - Constipation [Unknown]
  - Constipation [Unknown]
  - Fatigue [Unknown]
  - Flatulence [Unknown]
  - Inflammation [Recovered/Resolved]
  - Malaise [Unknown]
  - Malaise [Unknown]
  - Nausea [Unknown]
  - Off label use [Unknown]
  - Off label use [Unknown]
  - Pain in extremity [Unknown]
  - Poor venous access [Unknown]
  - Product dose omission issue [Unknown]
  - Product dose omission issue [Unknown]
  - Product dose omission issue [Unknown]
  - Therapy interrupted [Unknown]
  - Vascular access site scar [Unknown]
  - Wrong technique in product usage process [Unknown]
  - Malaise [Unknown]

NARRATIVE: CASE EVENT DATE: 20231117
